FAERS Safety Report 11835257 (Version 28)
Quarter: 2018Q2

REPORT INFORMATION
  Report Type: Report from Study
  Country: CA (occurrence: CA)
  Receive Date: 20151215
  Receipt Date: 20180629
  Transmission Date: 20180711
  Serious: Yes (Hospitalization, Other)
  Sender: FDA-Public Use
  Company Number: CA-ROCHE-1292796

PATIENT
  Age: 68 Year
  Sex: Male
  Weight: 125 kg

DRUGS (13)
  1. METHOTREXATE. [Suspect]
     Active Substance: METHOTREXATE
     Indication: PRODUCT USED FOR UNKNOWN INDICATION
     Route: 065
  2. ACTEMRA [Suspect]
     Active Substance: TOCILIZUMAB
     Route: 042
     Dates: start: 20130418, end: 20180410
  3. PREDNISONE. [Suspect]
     Active Substance: PREDNISONE
     Indication: PRODUCT USED FOR UNKNOWN INDICATION
     Route: 065
  4. COVERSYL [Concomitant]
     Active Substance: PERINDOPRIL
  5. RISEDRONATE [Concomitant]
     Active Substance: RISEDRONATE SODIUM
  6. CEPHALEXIN. [Suspect]
     Active Substance: CEPHALEXIN
     Indication: PRODUCT USED FOR UNKNOWN INDICATION
     Route: 065
  7. PLAQUENIL [Concomitant]
     Active Substance: HYDROXYCHLOROQUINE SULFATE
  8. CYCLOPHOSPHAMIDE. [Concomitant]
     Active Substance: CYCLOPHOSPHAMIDE
     Dosage: NEXT DOSE WAS ON 31-MAY-2018
     Route: 065
     Dates: start: 20180504
  9. FOLIC ACID. [Concomitant]
     Active Substance: FOLIC ACID
  10. RHINOCORT (CANADA) [Concomitant]
  11. OXYNEO [Concomitant]
     Active Substance: OXYCODONE
  12. OXYCODONE [Concomitant]
     Active Substance: OXYCODONE
  13. ACTEMRA [Suspect]
     Active Substance: TOCILIZUMAB
     Indication: RHEUMATOID ARTHRITIS
     Route: 042
     Dates: start: 2011

REACTIONS (32)
  - Pneumonia [Unknown]
  - Facial paralysis [Unknown]
  - Lower respiratory tract infection [Unknown]
  - Lower respiratory tract congestion [Recovered/Resolved]
  - Weight decreased [Not Recovered/Not Resolved]
  - Blood pressure diastolic increased [Unknown]
  - Body temperature decreased [Unknown]
  - Musculoskeletal pain [Unknown]
  - Cataract [Unknown]
  - Pulmonary fibrosis [Not Recovered/Not Resolved]
  - Hypotension [Unknown]
  - Joint swelling [Unknown]
  - Wheezing [Unknown]
  - Erythema [Recovered/Resolved]
  - Rheumatoid arthritis [Unknown]
  - Pruritus [Recovering/Resolving]
  - Pain in extremity [Unknown]
  - Anxiety [Unknown]
  - Arthropathy [Unknown]
  - Dyspnoea [Unknown]
  - Rash [Recovered/Resolved]
  - Blood pressure systolic increased [Unknown]
  - Cataract [Not Recovered/Not Resolved]
  - Peripheral swelling [Unknown]
  - Weight increased [Unknown]
  - Nasopharyngitis [Unknown]
  - Middle ear effusion [Unknown]
  - Oxygen saturation decreased [Unknown]
  - Blood pressure increased [Unknown]
  - Interstitial lung disease [Unknown]
  - Blood pressure fluctuation [Unknown]
  - Arthralgia [Unknown]

NARRATIVE: CASE EVENT DATE: 201501
